FAERS Safety Report 20719863 (Version 2)
Quarter: 2022Q2

REPORT INFORMATION
  Report Type: Spontaneous
  Country: US (occurrence: US)
  Receive Date: 20220418
  Receipt Date: 20220526
  Transmission Date: 20220720
  Serious: Yes (Death, Hospitalization, Other)
  Sender: FDA-Public Use
  Company Number: US-VYERA PHARMACEUTICALS, LLC-2022VYE00011

PATIENT
  Age: 41 Year
  Sex: Male
  Weight: 68.934 kg

DRUGS (15)
  1. DARAPRIM [Suspect]
     Active Substance: PYRIMETHAMINE
     Indication: Cerebral toxoplasmosis
     Dosage: 200 MG, 1X/DAY ON DAY 1
     Route: 048
     Dates: start: 20220201
  2. DARAPRIM [Suspect]
     Active Substance: PYRIMETHAMINE
     Indication: HIV infection
     Dosage: 75 MG, 1X/DAY
     Route: 048
     Dates: start: 20220202
  3. ACETAMINOPHEN [Concomitant]
     Active Substance: ACETAMINOPHEN
     Dosage: 650 MG, AS NEEDED
  4. CEFTRIAXONE [Concomitant]
     Active Substance: CEFTRIAXONE
     Dosage: 2 G, 2X/DAY; EVERY 12 HOURS
     Route: 042
  5. NORCO [Concomitant]
     Active Substance: ACETAMINOPHEN\HYDROCODONE BITARTRATE
     Dosage: 5/325, EVERY 6 HOURS
  6. METRONIDAZOLE [Concomitant]
     Active Substance: METRONIDAZOLE
     Dosage: 500 MG, 3X/DAY (EVERY 8 HOURS)
     Route: 048
  7. ZOFRAN [Concomitant]
     Active Substance: ONDANSETRON HYDROCHLORIDE
     Dosage: 8 MG, EVERY 8 HOURS AS NEEDED
     Route: 042
  8. SULFADIAZINE [Concomitant]
     Active Substance: SULFADIAZINE
  9. LEUCOVORIN [Concomitant]
     Active Substance: LEUCOVORIN
  10. DEXAMETHASONE [Concomitant]
     Active Substance: DEXAMETHASONE
     Route: 048
  11. ATOVAQUONE [Concomitant]
     Active Substance: ATOVAQUONE
     Dosage: 1500 MG
     Route: 048
  12. AZITHROMYCIN [Concomitant]
     Active Substance: AZITHROMYCIN
     Dosage: 1200 MG
     Route: 048
  13. VALGANCICLOVIR [Concomitant]
     Active Substance: VALGANCICLOVIR
     Dosage: 900 MG
     Route: 048
  14. CARVEDILOL [Concomitant]
     Active Substance: CARVEDILOL
     Dosage: 25 MG
     Route: 048
  15. NYSTATIN [Concomitant]
     Active Substance: NYSTATIN
     Dosage: 500000 INTERNATIONAL UNIT PER MILLILITRE
     Route: 048

REACTIONS (8)
  - End stage AIDS [Fatal]
  - Cerebral toxoplasmosis [Fatal]
  - Encephalopathy [Not Recovered/Not Resolved]
  - Seizure [Unknown]
  - Respiration abnormal [Unknown]
  - Hyponatraemia [Unknown]
  - Dysphagia [Unknown]
  - Treatment noncompliance [Unknown]

NARRATIVE: CASE EVENT DATE: 20211101
